FAERS Safety Report 5002853-5 (Version None)
Quarter: 2006Q2

REPORT INFORMATION
  Report Type: 
  Country: None (occurrence: None)
  Receive Date: 20060512
  Receipt Date: 20060426
  Transmission Date: 20061013
  Serious: Yes (Other)
  Sender: FDA-Public Use
  Company Number: BR200604004640

PATIENT
  Age: 57 Year
  Sex: Female

DRUGS (2)
  1. EVISTA [Suspect]
     Indication: OSTEOPOROSIS POSTMENOPAUSAL
     Dates: start: 20040929, end: 20050812
  2. LEVOTHYROXINE SODIUM [Concomitant]

REACTIONS (1)
  - RETINAL VEIN THROMBOSIS [None]
